FAERS Safety Report 9428170 (Version 1)
Quarter: 2013Q3

REPORT INFORMATION
  Report Type: Spontaneous
  Country: US (occurrence: US)
  Receive Date: 20130730
  Receipt Date: 20130730
  Transmission Date: 20140515
  Serious: No
  Sender: FDA-Public Use
  Company Number: US-ABBOTT-12P-163-0993022-00

PATIENT
  Sex: Male

DRUGS (5)
  1. NIASPAN (COATED) [Suspect]
     Indication: BLOOD CHOLESTEROL INCREASED
     Dosage: 500MG DAILY
     Dates: start: 20121005
  2. AMIODARONE [Concomitant]
     Indication: ARRHYTHMIA
  3. LISINOPRIL [Concomitant]
     Indication: HYPERTENSION
  4. COUMADIN [Concomitant]
     Indication: PRODUCT USED FOR UNKNOWN INDICATION
  5. PRAVASTATIN [Concomitant]
     Indication: BLOOD CHOLESTEROL INCREASED

REACTIONS (1)
  - Muscular weakness [Not Recovered/Not Resolved]
